FAERS Safety Report 7798269-9 (Version None)
Quarter: 2011Q4

REPORT INFORMATION
  Report Type: 
  Country: None (occurrence: None)
  Receive Date: 20111004
  Receipt Date: 20110927
  Transmission Date: 20120403
  Serious: Yes (Hospitalization, Other)
  Sender: FDA-Public Use
  Company Number: AUR-APL-2011-05233

PATIENT
  Age: 37 Year
  Sex: Female

DRUGS (6)
  1. CARBAMAZEPINE [Concomitant]
     Indication: PRODUCT USED FOR UNKNOWN INDICATION
     Dosage: ORAL
     Route: 048
  2. TRAMADOL HCL [Suspect]
     Indication: PRODUCT USED FOR UNKNOWN INDICATION
     Dosage: ORAL
     Route: 048
  3. WARFARIN SODIUM [Suspect]
     Indication: PRODUCT USED FOR UNKNOWN INDICATION
     Dosage: ORAL
     Route: 048
  4. INSULIN (INSULIN) [Suspect]
     Indication: CARDIOGENIC SHOCK
  5. AMLODIPINE [Suspect]
     Indication: PRODUCT USED FOR UNKNOWN INDICATION
     Dosage: ORAL
     Route: 048
  6. LOXAPINE [Suspect]
     Indication: PRODUCT USED FOR UNKNOWN INDICATION
     Dosage: ORAL
     Route: 048

REACTIONS (7)
  - CARDIOGENIC SHOCK [None]
  - BLOOD POTASSIUM DECREASED [None]
  - BLOOD GLUCOSE INCREASED [None]
  - FINGER AMPUTATION [None]
  - EXTREMITY NECROSIS [None]
  - TOXICITY TO VARIOUS AGENTS [None]
  - DISSEMINATED INTRAVASCULAR COAGULATION [None]
